FAERS Safety Report 5114915-2 (Version None)
Quarter: 2006Q3

REPORT INFORMATION
  Report Type: 
  Country: None (occurrence: None)
  Receive Date: 20060921
  Receipt Date: 20060908
  Transmission Date: 20061208
  Serious: Yes (Hospitalization)
  Sender: FDA-Public Use
  Company Number: 2006109400

PATIENT
  Age: 79 Year
  Sex: Female

DRUGS (13)
  1. LYRICA [Suspect]
     Indication: PAIN
     Dosage: 100 MG (50 MG,2 IN 1 D), ORAL
     Route: 048
     Dates: start: 20060601, end: 20060801
  2. CARVEDILOL [Concomitant]
  3. OXYCONTIN [Concomitant]
  4. LEVOTHYROXINE SODIUM [Concomitant]
  5. TOLVON (MIANSERIN HYDROCHLORIDE) [Concomitant]
  6. SOBRIL (OXAZEPAM) [Concomitant]
  7. POTASSIUM CHLORIDE [Concomitant]
  8. CALCIGRAN (ASCORBIC ACID, CALCIUM CARBONATE, CITRIC ACID, COLECALCIFER [Concomitant]
  9. IMOVANE (ZOPICLONE) [Concomitant]
  10. CENTYL (BENDROFLUMETHIAZIDE) [Concomitant]
  11. FUROSEMIDE [Concomitant]
  12. ALBYL-E (ACETYLSALICYLIC ACID, MAGNESIUM OXIDE) [Concomitant]
  13. FOSAMAX [Concomitant]

REACTIONS (7)
  - ANAEMIA [None]
  - BLOOD CREATINE PHOSPHOKINASE INCREASED [None]
  - DYSPNOEA [None]
  - HEPATORENAL FAILURE [None]
  - MALAISE [None]
  - MULTI-ORGAN FAILURE [None]
  - TROPONIN T INCREASED [None]
